FAERS Safety Report 6412258-8 (Version None)
Quarter: 2009Q4

REPORT INFORMATION
  Report Type: 
  Country: None (occurrence: None)
  Receive Date: 20091023
  Receipt Date: 20091013
  Transmission Date: 20100525
  Serious: Yes (Other)
  Sender: FDA-Public Use
  Company Number: US-PFIZER INC-2006150831

PATIENT
  Sex: Female

DRUGS (15)
  1. DEPO-PROVERA [Suspect]
     Indication: CONTRACEPTION
     Dosage: UNK
     Route: 030
     Dates: start: 19950101, end: 20040101
  2. MEDROXYPROGESTERONE [Concomitant]
  3. RANITIDINE [Concomitant]
  4. POVIDONE-IODINE [Concomitant]
  5. CEPHALEXIN [Concomitant]
  6. METRONIDAZOLE [Concomitant]
  7. AMOXICILLIN [Concomitant]
  8. DIFLUCAN [Concomitant]
  9. CYCLOBENZAPRINE [Concomitant]
  10. GYNAZOLE [Concomitant]
  11. SULFAMETHOXAZOLE AND TRIMETHOPRIM [Concomitant]
  12. LORATADINE [Concomitant]
  13. BIAXIN [Concomitant]
  14. PROMETHAZINE W/ CODEINE [Concomitant]
  15. ZITHROMAX [Concomitant]

REACTIONS (3)
  - BACK PAIN [None]
  - OSTEOPOROSIS [None]
  - UPPER LIMB FRACTURE [None]
